FAERS Safety Report 23815712 (Version 2)
Quarter: 2024Q2

REPORT INFORMATION
  Report Type: Report from Study
  Country: CA (occurrence: None)
  Receive Date: 20240503
  Receipt Date: 20240510
  Transmission Date: 20240715
  Serious: Yes (Hospitalization, Other)
  Sender: FDA-Public Use
  Company Number: 2024A100453

PATIENT
  Sex: Male

DRUGS (4)
  1. TEZEPELUMAB-EKKO [Suspect]
     Active Substance: TEZEPELUMAB-EKKO
     Indication: Asthma
     Dosage: 210.0MG UNKNOWN
     Route: 058
     Dates: start: 20230216
  2. VENTOLIN [Concomitant]
     Active Substance: ALBUTEROL SULFATE
  3. BREO ELLIPTA [Concomitant]
     Active Substance: FLUTICASONE FUROATE\VILANTEROL TRIFENATATE
  4. MORPHINE [Concomitant]
     Active Substance: MORPHINE

REACTIONS (5)
  - Pulmonary embolism [Unknown]
  - Pulmonary thrombosis [Unknown]
  - Abdominal rigidity [Unknown]
  - Feeding disorder [Unknown]
  - Liquid product physical issue [Unknown]
